FAERS Safety Report 7946996-2 (Version None)
Quarter: 2011Q4

REPORT INFORMATION
  Report Type: 
  Country: None (occurrence: None)
  Receive Date: 20111129
  Receipt Date: 20111124
  Transmission Date: 20120403
  Serious: Yes (Hospitalization)
  Sender: FDA-Public Use
  Company Number: MX-ABBOTT-11P-107-0856905-00

PATIENT
  Age: 40 Year
  Sex: Male
  Weight: 48 kg

DRUGS (2)
  1. METHOTREXATE [Concomitant]
     Indication: ANKYLOSING SPONDYLITIS
     Route: 030
  2. HUMIRA [Suspect]
     Indication: ANKYLOSING SPONDYLITIS
     Route: 058
     Dates: start: 20110101, end: 20110928

REACTIONS (4)
  - TUBERCULOSIS [None]
  - CHILLS [None]
  - C-REACTIVE PROTEIN INCREASED [None]
  - PYREXIA [None]
